FAERS Safety Report 9154138 (Version 1)
Quarter: 2013Q1

REPORT INFORMATION
  Report Type: Spontaneous
  Country: US (occurrence: None)
  Receive Date: 20130308
  Receipt Date: 20130308
  Transmission Date: 20140127
  Serious: Yes (Life-Threatening, Other)
  Sender: FDA-Public Use
  Company Number: None

PATIENT
  Age: 74 Year
  Sex: Female
  Weight: 68.04 kg

DRUGS (1)
  1. LEVOTHYROXIN [Suspect]
     Indication: HYPOTHYROIDISM
     Dosage: 100 MCG  EVERY MORNING  MOUTH?SEVERAL YEARS UNTIL FALL ^11
     Route: 048

REACTIONS (4)
  - Dysphagia [None]
  - Dyspnoea [None]
  - Choking [None]
  - Product substitution issue [None]
